FAERS Safety Report 7009281-1 (Version None)
Quarter: 2010Q3

REPORT INFORMATION
  Report Type: 
  Country: None (occurrence: None)
  Receive Date: 20100923
  Receipt Date: 20100916
  Transmission Date: 20110219
  Serious: Yes (Other)
  Sender: FDA-Public Use
  Company Number: JP-BRISTOL-MYERS SQUIBB COMPANY-15298516

PATIENT
  Age: 31 Year
  Sex: Female

DRUGS (8)
  1. ABILIFY [Suspect]
     Indication: SCHIZOPHRENIA
     Route: 048
     Dates: start: 20100908, end: 20100909
  2. VALERIN [Concomitant]
  3. CARBAMAZEPINE [Concomitant]
  4. NEULEPTIL [Concomitant]
  5. ZESTROMIN [Concomitant]
     Dosage: TAB
  6. CONTOMIN [Concomitant]
  7. HORIZON [Concomitant]
  8. VEGETAMIN-A [Concomitant]
     Dosage: TAB

REACTIONS (1)
  - CARDIAC FAILURE [None]
